FAERS Safety Report 9997648 (Version 1)
Quarter: 2014Q1

REPORT INFORMATION
  Report Type: Spontaneous
  Country: US (occurrence: None)
  Receive Date: 20140225
  Receipt Date: 20140225
  Transmission Date: 20141002
  Serious: Yes (Other)
  Sender: FDA-Public Use
  Company Number: 2013-149

PATIENT
  Age: 49 Year
  Sex: Female

DRUGS (1)
  1. PRIALT [Suspect]
     Indication: COMPLEX REGIONAL PAIN SYNDROME
     Dosage: UNK MCG, ONCE/HOUR, INTRATHECAL

REACTIONS (8)
  - Urinary retention [None]
  - Oedema [None]
  - Eye discharge [None]
  - Dizziness [None]
  - Confusional state [None]
  - Vision blurred [None]
  - Diplopia [None]
  - Disorientation [None]
